FAERS Safety Report 7550085-9 (Version None)
Quarter: 2011Q2

REPORT INFORMATION
  Report Type: 
  Country: None (occurrence: None)
  Receive Date: 20110615
  Receipt Date: 20110608
  Transmission Date: 20111010
  Serious: Yes (Other)
  Sender: FDA-Public Use
  Company Number: PHHY2011GB52101

PATIENT

DRUGS (3)
  1. TREOSULFAN [Concomitant]
     Dosage: 42 G/M2
  2. CAMPATH [Concomitant]
  3. FLUDARABINE PHOSPHATE [Suspect]
     Indication: WISKOTT-ALDRICH SYNDROME

REACTIONS (1)
  - NEPHROTIC SYNDROME [None]
